FAERS Safety Report 10196513 (Version 3)
Quarter: 2014Q2

REPORT INFORMATION
  Report Type: Spontaneous
  Country: TR (occurrence: TR)
  Receive Date: 20140527
  Receipt Date: 20140618
  Transmission Date: 20141212
  Serious: Yes (Death, Hospitalization)
  Sender: FDA-Public Use
  Company Number: TR-PFIZER INC-2013133766

PATIENT
  Age: 69 Year
  Sex: Female
  Weight: 54 kg

DRUGS (9)
  1. AMIODARONE HCL [Suspect]
     Indication: ATRIAL FIBRILLATION
     Dosage: 600 MG, DAILY
     Route: 048
  2. AMIODARONE HYDROCHLORIDE [Suspect]
     Indication: ATRIAL FIBRILLATION
     Dosage: 300 MG/30 MIN
     Route: 042
  3. AMIODARONE HYDROCHLORIDE [Suspect]
     Dosage: 1200 MG/24 HOURS
     Route: 042
  4. AMIODARONE HYDROCHLORIDE [Suspect]
     Dosage: 300 MG/30 MIN
     Route: 051
  5. AMIODARONE HYDROCHLORIDE [Suspect]
     Dosage: 1200 MG/24 HOURS
     Route: 042
  6. METOPROLOL [Concomitant]
     Dosage: 5 MG/ DAILY
  7. DIGOXIN [Concomitant]
     Dosage: 0.25 MG/ DAILY
  8. FUROSEMIDE [Concomitant]
     Dosage: 80 MG, WEEKLY
  9. WARFARIN [Concomitant]
     Dosage: UNK
     Route: 048

REACTIONS (2)
  - Multi-organ failure [Fatal]
  - Hepatitis toxic [Unknown]
